FAERS Safety Report 24187573 (Version 1)
Quarter: 2024Q3

REPORT INFORMATION
  Report Type: Spontaneous
  Country: FR (occurrence: FR)
  Receive Date: 20240808
  Receipt Date: 20240808
  Transmission Date: 20241017
  Serious: Yes (Other)
  Sender: RANBAXY
  Company Number: FR-AFSSAPS-PB2024000547

PATIENT
  Age: 15 Year
  Sex: Female
  Weight: 83 kg

DRUGS (2)
  1. DESLORATADINE [Suspect]
     Active Substance: DESLORATADINE
     Indication: Poisoning deliberate
     Dosage: 15 CP
     Route: 048
     Dates: start: 20240412
  2. AZATHIOPRINE [Suspect]
     Active Substance: AZATHIOPRINE
     Indication: Poisoning deliberate
     Dosage: 25 CP
     Route: 048
     Dates: start: 20240412

REACTIONS (2)
  - Abdominal pain upper [Recovered/Resolved]
  - Poisoning deliberate [Recovered/Resolved]

NARRATIVE: CASE EVENT DATE: 20240412
